FAERS Safety Report 11585641 (Version 1)
Quarter: 2015Q4

REPORT INFORMATION
  Report Type: Report from Study
  Country: US (occurrence: US)
  Receive Date: 20151001
  Receipt Date: 20151001
  Transmission Date: 20160304
  Serious: Yes (Other)
  Sender: FDA-Public Use
  Company Number: US-AMGEN-USASL2015099515

PATIENT
  Age: 56 Year
  Sex: Male

DRUGS (1)
  1. ENBREL [Suspect]
     Active Substance: ETANERCEPT
     Indication: PSORIATIC ARTHROPATHY
     Dosage: 50 MG, QWK
     Route: 065
     Dates: start: 2008

REACTIONS (13)
  - Meniscus injury [Unknown]
  - Dizziness [Unknown]
  - Inguinal hernia [Unknown]
  - Feeling hot [Unknown]
  - Nasopharyngitis [Unknown]
  - Asthenia [Unknown]
  - Appendicitis [Unknown]
  - Malaise [Unknown]
  - Exostosis [Unknown]
  - Mobility decreased [Unknown]
  - Epicondylitis [Unknown]
  - Feeling abnormal [Unknown]
  - Hypertension [Unknown]

NARRATIVE: CASE EVENT DATE: 2014
